FAERS Safety Report 10713481 (Version 1)
Quarter: 2015Q1

REPORT INFORMATION
  Report Type: Report from Study
  Country: NL (occurrence: NL)
  Receive Date: 20150115
  Receipt Date: 20150115
  Transmission Date: 20150721
  Serious: Yes (Other)
  Sender: FDA-Public Use
  Company Number: NL-MYLANLABS-2015M1000570

PATIENT

DRUGS (3)
  1. HALOPERIDOL. [Suspect]
     Active Substance: HALOPERIDOL
     Dosage: 0.02 MG/KG/DAY
     Route: 048
  2. HALOPERIDOL. [Suspect]
     Active Substance: HALOPERIDOL
     Dosage: 0.12 MG/KG/DAY
     Route: 048
  3. HALOPERIDOL. [Suspect]
     Active Substance: HALOPERIDOL
     Dosage: 0.08 MG/KG/DAY
     Route: 048

REACTIONS (4)
  - Unevaluable event [Recovering/Resolving]
  - Depressed level of consciousness [Recovering/Resolving]
  - Tremor [Recovering/Resolving]
  - Dystonia [Recovering/Resolving]
